FAERS Safety Report 7859811-2 (Version None)
Quarter: 2011Q4

REPORT INFORMATION
  Report Type: 
  Country: None (occurrence: None)
  Receive Date: 20111027
  Receipt Date: 20111020
  Transmission Date: 20120403
  Serious: Yes (Other)
  Sender: FDA-Public Use
  Company Number: AT-PFIZER INC-2011254717

PATIENT
  Age: 75 Year
  Sex: Male
  Weight: 90.7 kg

DRUGS (6)
  1. METOPROLOL [Concomitant]
     Dosage: 500 MG, 2X/DAY
  2. UNASYN [Suspect]
     Indication: BRONCHITIS
     Dosage: 3 G, 2X/DAY
     Route: 042
     Dates: start: 20111010, end: 20111017
  3. UNASYN [Suspect]
     Indication: FEBRILE INFECTION
     Dosage: UNK
  4. UNASYN [Suspect]
     Dosage: 2 DF, 2X/DAY
     Route: 048
     Dates: start: 20111017, end: 20111019
  5. UNASYN [Suspect]
  6. AMIODARONE HYDROCHLORIDE [Concomitant]
     Dosage: 200 MG, 1X/DAY

REACTIONS (1)
  - INTERNATIONAL NORMALISED RATIO ABNORMAL [None]
